FAERS Safety Report 8805325 (Version 2)
Quarter: 2015Q1

REPORT INFORMATION
  Report Type: Report from Study
  Country: US (occurrence: US)
  Receive Date: 20120924
  Receipt Date: 20150316
  Transmission Date: 20150721
  Serious: Yes (Death, Other)
  Sender: FDA-Public Use
  Company Number: US-ROCHE-1103804

PATIENT
  Age: 62 Year
  Sex: Female

DRUGS (21)
  1. AVASTIN [Suspect]
     Active Substance: BEVACIZUMAB
     Indication: BREAST CANCER FEMALE
     Dosage: 3 WEEKS ON 1 WEEK OFF
     Route: 042
     Dates: start: 20050810
  2. AVASTIN [Suspect]
     Active Substance: BEVACIZUMAB
     Dosage: 3 WEEKS ON 1 WEEK OFF
     Route: 042
     Dates: start: 20051209
  3. AVASTIN [Suspect]
     Active Substance: BEVACIZUMAB
     Dosage: 3 WEEKS ON 1 WEEK OFF
     Route: 042
     Dates: start: 20060105, end: 20060106
  4. NEULASTA [Concomitant]
     Active Substance: PEGFILGRASTIM
     Route: 058
  5. ADRIAMYCIN [Concomitant]
     Active Substance: DOXORUBICIN HYDROCHLORIDE
     Route: 065
     Dates: start: 20050905, end: 20060106
  6. PROTONIX (UNITED STATES) [Concomitant]
     Route: 048
  7. FLUCONAZOLE. [Concomitant]
     Active Substance: FLUCONAZOLE
     Dosage: PRN
     Route: 065
  8. ARANESP [Concomitant]
     Active Substance: DARBEPOETIN ALFA
     Route: 042
  9. AVASTIN [Suspect]
     Active Substance: BEVACIZUMAB
     Indication: BREAST CANCER IN SITU
     Dosage: 3 WEEKS ON 1 WEEK OFF
     Route: 042
     Dates: start: 20050909
  10. NEURONTIN [Concomitant]
     Active Substance: GABAPENTIN
  11. NIFEDIPINE. [Concomitant]
     Active Substance: NIFEDIPINE
     Route: 065
  12. SENOKOT [Concomitant]
     Active Substance: SENNOSIDES
  13. FASLODEX [Concomitant]
     Active Substance: FULVESTRANT
     Route: 030
     Dates: end: 20050905
  14. LYRICA [Concomitant]
     Active Substance: PREGABALIN
     Route: 048
  15. ALEVE [Concomitant]
     Active Substance: NAPROXEN SODIUM
     Dosage: PRN
     Route: 065
  16. TOPROL XL [Concomitant]
     Active Substance: METOPROLOL SUCCINATE
     Route: 048
  17. CYTOXAN [Concomitant]
     Active Substance: CYCLOPHOSPHAMIDE
     Route: 042
     Dates: start: 20050905, end: 20060106
  18. ZOFRAN [Concomitant]
     Active Substance: ONDANSETRON HYDROCHLORIDE
     Route: 048
  19. VICODIN [Concomitant]
     Active Substance: ACETAMINOPHEN\HYDROCODONE BITARTRATE
     Dosage: PRN
     Route: 048
  20. AVASTIN [Suspect]
     Active Substance: BEVACIZUMAB
     Dosage: 3 WEEKS ON 1 WEEK OFF
     Route: 042
     Dates: start: 20051110
  21. AVASTIN [Suspect]
     Active Substance: BEVACIZUMAB
     Dosage: 3 WEEKS ON 1 WEEK OFF
     Route: 042
     Dates: start: 20051031

REACTIONS (14)
  - Death [Fatal]
  - Vomiting [Unknown]
  - Vertigo [Unknown]
  - Disease progression [Unknown]
  - Memory impairment [Unknown]
  - Neutropenia [Unknown]
  - Platelet count decreased [Unknown]
  - Headache [Unknown]
  - Off label use [Unknown]
  - Neck pain [Unknown]
  - Vision blurred [Unknown]
  - Confusional state [Unknown]
  - Syncope [Unknown]
  - Dizziness [Unknown]

NARRATIVE: CASE EVENT DATE: 20060211
